FAERS Safety Report 7048067-9 (Version None)
Quarter: 2010Q4

REPORT INFORMATION
  Report Type: 
  Country: None (occurrence: None)
  Receive Date: 20101015
  Receipt Date: 20101007
  Transmission Date: 20110411
  Serious: Yes (Hospitalization)
  Sender: FDA-Public Use
  Company Number: B0678291A

PATIENT
  Sex: Male
  Weight: 70 kg

DRUGS (5)
  1. ARIXTRA [Suspect]
     Indication: THROMBOSIS PROPHYLAXIS
     Dosage: 2.5MG PER DAY
     Route: 058
     Dates: start: 20100701, end: 20100813
  2. MANIDIPINE [Concomitant]
     Dosage: 10MG PER DAY
     Route: 048
  3. PARIET [Concomitant]
     Dosage: 20MG PER DAY
     Route: 048
  4. SERESTA [Concomitant]
     Indication: ANXIETY
     Dosage: 10MG PER DAY
     Route: 048
  5. ELISOR [Concomitant]
     Dosage: 20MG PER DAY
     Route: 048

REACTIONS (6)
  - ANAEMIA [None]
  - HAEMATOMA [None]
  - MALAISE [None]
  - OEDEMA PERIPHERAL [None]
  - PAIN IN EXTREMITY [None]
  - PYREXIA [None]
